FAERS Safety Report 9841002 (Version 1)
Quarter: 2013Q4

REPORT INFORMATION
  Report Type: Spontaneous
  Country: US (occurrence: None)
  Receive Date: 20131219
  Receipt Date: 20131219
  Transmission Date: 20140711
  Serious: Yes (Death)
  Sender: FDA-Public Use
  Company Number: 163-20785-12100928

PATIENT
  Age: 17 Year
  Sex: Female

DRUGS (4)
  1. THALOMID [Suspect]
     Indication: NEUROBLASTOMA
     Dosage: 1 IN 1 D
     Route: 048
     Dates: start: 201004, end: 201008
  2. ETOPOSIDE (ETOPOSIDE) [Concomitant]
  3. TEMOZOLOMIDE [Concomitant]
  4. CELECOXIB (CELECOXIB) [Concomitant]

REACTIONS (2)
  - Neuroblastoma [None]
  - Disease progression [None]
